FAERS Safety Report 5298054-6 (Version None)
Quarter: 2007Q2

REPORT INFORMATION
  Report Type: 
  Country: None (occurrence: None)
  Receive Date: 20070416
  Receipt Date: 20070319
  Transmission Date: 20071010
  Serious: Yes (Other)
  Sender: FDA-Public Use
  Company Number: US-JNJFOC-20070100727

PATIENT
  Sex: Female
  Weight: 77.57 kg

DRUGS (2)
  1. ULTRAM ER [Suspect]
     Indication: KNEE ARTHROPLASTY
     Route: 048
  2. SYNTHROID [Concomitant]
     Route: 048

REACTIONS (2)
  - DEAFNESS [None]
  - DRUG INEFFECTIVE [None]
